FAERS Safety Report 7806413-X (Version None)
Quarter: 2011Q4

REPORT INFORMATION
  Report Type: 
  Country: None (occurrence: None)
  Receive Date: 20111011
  Receipt Date: 20111006
  Transmission Date: 20120403
  Serious: Yes (Hospitalization, Other)
  Sender: FDA-Public Use
  Company Number: RO-BRISTOL-MYERS SQUIBB COMPANY-16077166

PATIENT
  Age: 49 Year
  Sex: Female

DRUGS (7)
  1. ALPRAZOLAM [Concomitant]
  2. ESCITALOPRAM [Concomitant]
     Dates: start: 20080501
  3. LORAZEPAM [Concomitant]
     Dates: start: 20100101
  4. TRAZODONE HCL [Concomitant]
     Dates: start: 20100601
  5. ABILIFY [Suspect]
     Indication: SCHIZOPHRENIA
     Dosage: ALSO TAKEN FROM JUL2010
     Route: 048
     Dates: start: 20070701
  6. ZOLPIDEM [Concomitant]
     Dates: start: 20100301
  7. CLONAZEPAM [Concomitant]
     Dates: start: 20100301

REACTIONS (2)
  - SYNCOPE [None]
  - PULMONARY EMBOLISM [None]
